FAERS Safety Report 6895388-6 (Version None)
Quarter: 2010Q3

REPORT INFORMATION
  Report Type: 
  Country: None (occurrence: None)
  Receive Date: 20100802
  Receipt Date: 20100722
  Transmission Date: 20110219
  Serious: Yes (Death)
  Sender: FDA-Public Use
  Company Number: MY-PFIZER INC-2010043676

PATIENT
  Age: 63 Year
  Sex: Female
  Weight: 47.5 kg

DRUGS (6)
  1. SUNITINIB MALATE [Suspect]
     Indication: HEPATIC NEOPLASM MALIGNANT
     Dosage: 12.5 MG, ALTERNATE DAYS
     Route: 048
     Dates: start: 20100317, end: 20100404
  2. FRUSEMIDE [Concomitant]
     Indication: DIURETIC THERAPY
     Dosage: 80 MG, 2X/DAY
     Dates: start: 20100331
  3. SPIRONOLACTONE [Concomitant]
     Indication: DIURETIC THERAPY
     Dosage: 100 MG, 2X/DAY
     Dates: start: 20091102
  4. PREDNISOLONE [Concomitant]
     Indication: PETECHIAE
     Dosage: 20 MG, 1X/DAY
     Dates: start: 20100331
  5. PREDNISOLONE [Concomitant]
     Indication: RENAL DISORDER
  6. OMEPRAZOLE [Concomitant]
     Indication: PROPHYLAXIS
     Dosage: 20 MG, 1X/DAY
     Dates: start: 20091020

REACTIONS (4)
  - DISEASE PROGRESSION [None]
  - HEPATIC NEOPLASM MALIGNANT RECURRENT [None]
  - NAUSEA [None]
  - VOMITING [None]
